FAERS Safety Report 23678112 (Version 1)
Quarter: 2024Q1

REPORT INFORMATION
  Report Type: Report from Study
  Country: FR (occurrence: FR)
  Receive Date: 20240327
  Receipt Date: 20240327
  Transmission Date: 20240410
  Serious: Yes (Other)
  Sender: FDA-Public Use
  Company Number: FR-GUERBETG-FR-20240124

PATIENT
  Sex: Female

DRUGS (1)
  1. IOVERSOL [Suspect]
     Active Substance: IOVERSOL
     Indication: Product used for unknown indication

REACTIONS (1)
  - Acute generalised exanthematous pustulosis [Unknown]
